FAERS Safety Report 9374972 (Version 2)
Quarter: 2013Q3

REPORT INFORMATION
  Report Type: Spontaneous
  Country: IT (occurrence: IT)
  Receive Date: 20130628
  Receipt Date: 20130912
  Transmission Date: 20140515
  Serious: Yes (Hospitalization)
  Sender: FDA-Public Use
  Company Number: IT-ABBOTT-13X-083-1112202-00

PATIENT
  Age: 25 Year
  Sex: Male

DRUGS (7)
  1. DEPAKIN [Suspect]
     Indication: BIPOLAR DISORDER
     Route: 048
     Dates: start: 20130419
  2. DEPAKIN [Suspect]
     Route: 048
     Dates: end: 20130606
  3. ZYPREXA [Suspect]
     Indication: BIPOLAR DISORDER
     Route: 048
     Dates: start: 20130507, end: 20130606
  4. SEROQUEL [Suspect]
     Indication: BIPOLAR DISORDER
     Route: 048
     Dates: start: 20130510
  5. CARBOLITHIUM [Suspect]
     Indication: BIPOLAR DISORDER
     Route: 048
     Dates: start: 20130510
  6. CARBOLITHIUM [Suspect]
     Route: 048
     Dates: end: 20130606
  7. BRUFEN [Concomitant]
     Indication: PRODUCT USED FOR UNKNOWN INDICATION

REACTIONS (7)
  - Drug reaction with eosinophilia and systemic symptoms [Recovering/Resolving]
  - Rash erythematous [Recovering/Resolving]
  - Pyrexia [Recovered/Resolved]
  - Lymphadenopathy [Recovering/Resolving]
  - Mononucleosis syndrome [Recovering/Resolving]
  - Hepatic lesion [Recovering/Resolving]
  - Blood lactate dehydrogenase increased [Recovering/Resolving]
